FAERS Safety Report 12257653 (Version 1)
Quarter: 2016Q2

REPORT INFORMATION
  Report Type: Report from Study
  Country: US (occurrence: US)
  Receive Date: 20160412
  Receipt Date: 20160412
  Transmission Date: 20160815
  Serious: Yes (Other)
  Sender: FDA-Public Use
  Company Number: US-MALLINCKRODT-T201601104

PATIENT
  Sex: Male

DRUGS (37)
  1. CYMBALTA [Suspect]
     Active Substance: DULOXETINE HYDROCHLORIDE
     Indication: DEPRESSION
     Dosage: UNK
     Route: 048
     Dates: end: 2015
  2. TYLENOL [Concomitant]
     Active Substance: ACETAMINOPHEN
  3. BICITRA [Concomitant]
     Active Substance: CITRIC ACID, 1-STEARYL ESTER\SODIUM CITRATE
  4. MORPHINE [Concomitant]
     Active Substance: MORPHINE
  5. NARCAN [Concomitant]
     Active Substance: NALOXONE HYDROCHLORIDE
  6. PREDNISOLONE. [Concomitant]
     Active Substance: PREDNISOLONE
  7. ANDRODERM [Concomitant]
     Active Substance: TESTOSTERONE
  8. VITAMIN C [Concomitant]
     Active Substance: ASCORBIC ACID
  9. LOMOTIL [Concomitant]
     Active Substance: ATROPINE SULFATE\DIPHENOXYLATE HYDROCHLORIDE
  10. NEURONTIN [Concomitant]
     Active Substance: GABAPENTIN
  11. CHLORASEPTIC SORE THROAT [Concomitant]
     Active Substance: PHENOL
  12. FLOMAX [Concomitant]
     Active Substance: TAMSULOSIN HYDROCHLORIDE
  13. VOLTAREN [Concomitant]
     Active Substance: DICLOFENAC SODIUM
  14. ROZEREM [Concomitant]
     Active Substance: RAMELTEON
  15. MAGNESIUM SULFATE. [Concomitant]
     Active Substance: MAGNESIUM SULFATE
  16. ROXICODONE [Concomitant]
     Active Substance: OXYCODONE HYDROCHLORIDE
  17. PACERONE [Concomitant]
     Active Substance: AMIODARONE HYDROCHLORIDE
  18. AQUAPHOR [Concomitant]
     Active Substance: PETROLATUM
  19. ZOFRAN [Concomitant]
     Active Substance: ONDANSETRON HYDROCHLORIDE
  20. FLORASTOR [Concomitant]
     Active Substance: SACCHAROMYCES CEREVISIAE
  21. REPOSITORY CORTICOTROPIN INJECTION [Suspect]
     Active Substance: CORTICOTROPIN
     Indication: SARCOIDOSIS
     Dosage: 80 UNITS TWICE WEEKY (EVERY 72 HOURS)
     Route: 065
     Dates: start: 201510, end: 2015
  22. PREDNISONE. [Concomitant]
     Active Substance: PREDNISONE
  23. PULMICORT TURBUHALER [Concomitant]
     Active Substance: BUDESONIDE
  24. VITAMIN D [Concomitant]
     Active Substance: CHOLECALCIFEROL
  25. PREVACID [Concomitant]
     Active Substance: LANSOPRAZOLE
  26. LIDODERM [Concomitant]
     Active Substance: LIDOCAINE
  27. IMODIUM [Concomitant]
     Active Substance: LOPERAMIDE HYDROCHLORIDE
  28. PAREGORIC [Concomitant]
     Active Substance: MORPHINE
  29. DESYREL [Concomitant]
     Active Substance: TRAZODONE HYDROCHLORIDE
  30. FLORINEF ACETATE [Concomitant]
     Active Substance: FLUDROCORTISONE ACETATE
  31. DUONEB [Concomitant]
     Active Substance: ALBUTEROL SULFATE\IPRATROPIUM BROMIDE
  32. PHENERGAN [Concomitant]
     Active Substance: PROMETHAZINE HYDROCHLORIDE
  33. VANCOCIN [Concomitant]
     Active Substance: VANCOMYCIN HYDROCHLORIDE
  34. ASPIRIN. [Concomitant]
     Active Substance: ASPIRIN
     Dosage: 81 MG
  35. DILAUDID [Concomitant]
     Active Substance: HYDROMORPHONE HYDROCHLORIDE
  36. MULTIVITAMIN [Concomitant]
     Active Substance: VITAMINS
  37. COUMADIN [Concomitant]
     Active Substance: WARFARIN SODIUM

REACTIONS (5)
  - Heart rate increased [Unknown]
  - Suicidal behaviour [Recovered/Resolved]
  - Anxiety [Unknown]
  - Delusion [Recovered/Resolved]
  - Unevaluable event [Unknown]

NARRATIVE: CASE EVENT DATE: 2015
